FAERS Safety Report 11185381 (Version 1)
Quarter: 2015Q2

REPORT INFORMATION
  Report Type: Spontaneous
  Country: US (occurrence: US)
  Receive Date: 20150612
  Receipt Date: 20150612
  Transmission Date: 20150821
  Serious: Yes (Hospitalization)
  Sender: FDA-Public Use
  Company Number: US-BAYER-2015-318560

PATIENT
  Age: 56 Year
  Sex: Male
  Weight: 100 kg

DRUGS (1)
  1. ALEVE [Suspect]
     Active Substance: NAPROXEN SODIUM
     Dosage: UNK
     Dates: start: 20140912

REACTIONS (21)
  - Blood pressure systolic decreased [None]
  - Hyperglycaemia [Recovered/Resolved]
  - Nausea [None]
  - Dizziness [None]
  - Choking sensation [None]
  - Peripheral swelling [None]
  - Enlarged uvula [None]
  - Rash erythematous [None]
  - Acute kidney injury [Recovered/Resolved]
  - Hypokalaemia [None]
  - Hypertension [None]
  - Paraesthesia [None]
  - Anaphylactic shock [None]
  - Dyspnoea [None]
  - Chest discomfort [None]
  - Flushing [None]
  - Hyperhidrosis [None]
  - Electrocardiogram QT prolonged [None]
  - Electrocardiogram ST segment depression [None]
  - Limb discomfort [None]
  - Troponin increased [None]

NARRATIVE: CASE EVENT DATE: 201409
